FAERS Safety Report 9833219 (Version 1)
Quarter: 2014Q1

REPORT INFORMATION
  Report Type: Spontaneous
  Country: US (occurrence: US)
  Receive Date: 20140121
  Receipt Date: 20140121
  Transmission Date: 20141002
  Serious: No
  Sender: FDA-Public Use
  Company Number: US-BAUSCH-BL-2013-001694

PATIENT
  Age: 79 Year
  Sex: Female

DRUGS (1)
  1. ALAWAY (KETOTIFEN FUMARATE OPHTHALMIC SOLUTION) [Suspect]
     Indication: EYE PRURITUS
     Dosage: 1 DROP; ONCE; OPHTHALMIC
     Route: 047
     Dates: start: 20130318, end: 20130318

REACTIONS (2)
  - Drug ineffective [Unknown]
  - Lacrimation increased [Not Recovered/Not Resolved]
